FAERS Safety Report 5472273-8 (Version None)
Quarter: 2007Q3

REPORT INFORMATION
  Report Type: 
  Country: None (occurrence: None)
  Receive Date: 20070927
  Receipt Date: 20070914
  Transmission Date: 20080115
  Serious: Yes (Hospitalization)
  Sender: FDA-Public Use
  Company Number: 2007US002191

PATIENT
  Age: 65 Year
  Sex: Male

DRUGS (8)
  1. VESICARE [Suspect]
     Indication: HYPERTONIC BLADDER
     Dates: end: 20070913
  2. DEMADEX [Concomitant]
  3. LISINOPRIL (LISINOPRIL DIHYDRATE) [Concomitant]
  4. WELLBUTRIN [Concomitant]
  5. NEURONTIN [Concomitant]
  6. HYDROCODONE BITARTRATE [Concomitant]
  7. ZOCOR [Concomitant]
  8. PRILOSEC [Concomitant]

REACTIONS (1)
  - HYPOTENSION [None]
